FAERS Safety Report 13862653 (Version 1)
Quarter: 2017Q3

REPORT INFORMATION
  Report Type: Spontaneous
  Country: US (occurrence: US)
  Receive Date: 20170814
  Receipt Date: 20170814
  Transmission Date: 20171127
  Serious: No
  Sender: FDA-Public Use
  Company Number: US-ENDO PHARMACEUTICALS INC-2016-003725

PATIENT
  Age: 74 Year
  Sex: Female
  Weight: 56.21 kg

DRUGS (6)
  1. ESTRACE [Concomitant]
     Active Substance: ESTRADIOL
     Indication: VAGINAL DYSPLASIA
  2. NASONEX [Concomitant]
     Active Substance: MOMETASONE FUROATE
     Indication: HYPERSENSITIVITY
  3. ALLOPURINOL TABLETS 100MG [Suspect]
     Active Substance: ALLOPURINOL
     Indication: BLOOD URIC ACID INCREASED
  4. VITAMIN D [Concomitant]
     Active Substance: CHOLECALCIFEROL
     Indication: VITAMIN D DEFICIENCY
  5. ALLOPURINOL TABLETS 100MG [Suspect]
     Active Substance: ALLOPURINOL
     Route: 048
     Dates: start: 20140424
  6. ALLOPURINOL TABLETS 100MG [Suspect]
     Active Substance: ALLOPURINOL
     Route: 048
     Dates: start: 20160425, end: 20160512

REACTIONS (13)
  - Tremor [Not Recovered/Not Resolved]
  - Meniscus injury [Unknown]
  - Intentional underdose [Recovered/Resolved]
  - Muscle spasms [Not Recovered/Not Resolved]
  - Faeces discoloured [Recovered/Resolved]
  - Gait inability [Not Recovered/Not Resolved]
  - Asthenia [Not Recovered/Not Resolved]
  - Frequent bowel movements [Recovered/Resolved]
  - Palpitations [Unknown]
  - Arthralgia [Not Recovered/Not Resolved]
  - Gait disturbance [Recovered/Resolved]
  - Muscular weakness [Recovered/Resolved]
  - Abnormal loss of weight [Recovered/Resolved]

NARRATIVE: CASE EVENT DATE: 2016
